FAERS Safety Report 23228145 (Version 1)
Quarter: 2023Q4

REPORT INFORMATION
  Report Type: Spontaneous
  Country: US (occurrence: US)
  Receive Date: 20231125
  Receipt Date: 20231125
  Transmission Date: 20240110
  Serious: No
  Sender: FDA-Public Use
  Company Number: US-002147023-NVSC2023US249218

PATIENT
  Age: 68 Year
  Sex: Female
  Weight: 83 kg

DRUGS (1)
  1. LEQVIO [Suspect]
     Active Substance: INCLISIRAN SODIUM
     Indication: Hyperlipidaemia
     Dosage: 284 MG, OTHER, AT MONTHS 0, 3, 6
     Route: 058
     Dates: start: 20221122, end: 20231109

REACTIONS (1)
  - Cough [Recovering/Resolving]

NARRATIVE: CASE EVENT DATE: 20231114
